FAERS Safety Report 7617784-1 (Version None)
Quarter: 2011Q3

REPORT INFORMATION
  Report Type: 
  Country: None (occurrence: None)
  Receive Date: 20110718
  Receipt Date: 20110711
  Transmission Date: 20111222
  Serious: Yes (Hospitalization)
  Sender: FDA-Public Use
  Company Number: GB-JNJFOC-2004070889

PATIENT
  Age: 34 Year
  Sex: Female

DRUGS (6)
  1. CLOZAPINE [Suspect]
     Indication: SCHIZOPHRENIA
     Dosage: DAILY DOSE TEXT: UNSPECIFIED
     Route: 048
     Dates: start: 20040630, end: 20041022
  2. LORAZEPAM [Concomitant]
     Dosage: DAILY DOSE TEXT: UNSPECIFIED
     Route: 065
  3. OMEPRAZOLE [Concomitant]
     Dosage: DAILY DOSE TEXT: UNSPECIFIED
     Route: 065
  4. ACETAMINOPHEN [Suspect]
     Indication: INTENTIONAL OVERDOSE
     Route: 065
     Dates: start: 20041022
  5. ACETAMINOPHEN [Suspect]
     Dosage: DAILY DOSE TEXT: 64-500 MG (FREQUENCY UNSPECIFIED)
     Route: 065
     Dates: start: 20040828
  6. HALOPERIDOL [Concomitant]
     Dosage: DAILY DOSE TEXT: UNSPECIFIED
     Route: 065

REACTIONS (6)
  - VOMITING [None]
  - ALANINE AMINOTRANSFERASE INCREASED [None]
  - BLOOD ALKALINE PHOSPHATASE [None]
  - LIVER FUNCTION TEST ABNORMAL [None]
  - FEAR [None]
  - INTENTIONAL OVERDOSE [None]
